FAERS Safety Report 9072067 (Version 1)
Quarter: 2013Q1

REPORT INFORMATION
  Report Type: Report from Study
  Country: US (occurrence: US)
  Receive Date: 20130129
  Receipt Date: 20130129
  Transmission Date: 20140127
  Serious: No
  Sender: FDA-Public Use
  Company Number: US-ABBOTT-12P-163-0928234-00

PATIENT
  Age: 32 Year
  Sex: Female

DRUGS (5)
  1. HUMIRA 40 MG/0.8 ML PEN [Suspect]
     Indication: PSORIASIS
     Dosage: LOADING DOSE
     Dates: start: 20120414
  2. PRENATAL VITAMINS [Concomitant]
     Indication: PRENATAL CARE
     Dosage: DAILY
  3. MELATONIN [Concomitant]
     Indication: INSOMNIA
  4. FISH OIL [Concomitant]
     Indication: ISCHAEMIC HEART DISEASE PROPHYLAXIS
  5. FISH OIL [Concomitant]
     Indication: CEREBROVASCULAR ACCIDENT PROPHYLAXIS

REACTIONS (4)
  - Injection site bruising [Unknown]
  - Injection site pain [Recovered/Resolved]
  - Injection site pain [Unknown]
  - Psoriasis [Unknown]
